FAERS Safety Report 6252811-8 (Version None)
Quarter: 2009Q3

REPORT INFORMATION
  Report Type: 
  Country: None (occurrence: None)
  Receive Date: 20090701
  Receipt Date: 20090625
  Transmission Date: 20100115
  Serious: Yes (Life-Threatening)
  Sender: FDA-Public Use
  Company Number: FR-AVENTIS-200912344FR

PATIENT
  Age: 66 Year
  Sex: Female

DRUGS (2)
  1. TAXOTERE [Suspect]
     Route: 042
     Dates: start: 20081002, end: 20081128
  2. AVASTIN                            /00848101/ [Suspect]
     Route: 042
     Dates: start: 20081002, end: 20081128

REACTIONS (2)
  - PSYCHIATRIC DECOMPENSATION [None]
  - SCHIZOPHRENIA, PARANOID TYPE [None]
